FAERS Safety Report 20573115 (Version 2)
Quarter: 2022Q2

REPORT INFORMATION
  Report Type: Spontaneous
  Country: US (occurrence: US)
  Receive Date: 20220309
  Receipt Date: 20220421
  Transmission Date: 20220721
  Serious: No
  Sender: FDA-Public Use
  Company Number: US-PFIZER INC-202200248754

PATIENT
  Age: 10 Year
  Sex: Male
  Weight: 21.77 kg

DRUGS (2)
  1. GENOTROPIN [Suspect]
     Active Substance: SOMATROPIN
     Indication: Weight abnormal
     Dosage: UNK, ALTERNATE DAY (1.1 ONE NIGHT THEN 1.8 THE NEXT NIGHT, ALTERNATING)
     Dates: start: 2021
  2. GENOTROPIN [Suspect]
     Active Substance: SOMATROPIN
     Dosage: UNK, ALTERNATE DAY (1.1 ONE NIGHT THEN 1.8 THE NEXT NIGHT, ALTERNATING)
     Dates: start: 2021

REACTIONS (6)
  - Drug effective for unapproved indication [Unknown]
  - Off label use [Unknown]
  - Product prescribing error [Unknown]
  - Device use issue [Unknown]
  - Drug dose omission by device [Unknown]
  - Gluten sensitivity [Unknown]

NARRATIVE: CASE EVENT DATE: 20220208
